FAERS Safety Report 11233959 (Version 1)
Quarter: 2015Q3

REPORT INFORMATION
  Report Type: Spontaneous
  Country: IN (occurrence: IN)
  Receive Date: 20150702
  Receipt Date: 20150702
  Transmission Date: 20151125
  Serious: Yes (Other)
  Sender: FDA-Public Use
  Company Number: IN-AMEDRA PHARMACEUTICALS LLC-2015AMD00119

PATIENT
  Age: 3 Year
  Weight: 10 kg

DRUGS (1)
  1. ZENTEL [Suspect]
     Active Substance: ALBENDAZOLE
     Dosage: 5 ML, UNK
     Route: 048

REACTIONS (2)
  - Seizure [Recovered/Resolved]
  - Loss of consciousness [Recovered/Resolved]
